FAERS Safety Report 10715981 (Version 1)
Quarter: 2015Q1

REPORT INFORMATION
  Report Type: Spontaneous
  Country: US (occurrence: None)
  Receive Date: 20150109
  Receipt Date: 20150109
  Transmission Date: 20150721
  Serious: Yes (Hospitalization)
  Sender: FDA-Public Use
  Company Number: 2014PROUSA03991

PATIENT
  Age: 60 Year
  Sex: Male
  Weight: 94.5 kg

DRUGS (8)
  1. PROVENGE [Suspect]
     Active Substance: SIPULEUCEL-T
     Indication: PROSTATE CANCER METASTATIC
     Dosage: 250 ML, SINGLE, INTRAVENOUS?
     Route: 042
     Dates: start: 20140724, end: 20140724
  2. ASPIRIN (ACETYLSALICYLIC ACID) [Concomitant]
     Active Substance: ASPIRIN
  3. VITAMIN D (COLECALCIFEROL) [Concomitant]
  4. CALCIUM (CALCIUM CARBONATE) [Concomitant]
  5. CASODEX [Concomitant]
     Active Substance: BICALUTAMIDE
  6. LIPITOR [Concomitant]
     Active Substance: ATORVASTATIN CALCIUM
  7. HYDROCODONE (HYDROCODONE BITARTRATE) [Concomitant]
     Active Substance: HYDROCODONE BITARTRATE
  8. ALEVE (NAPROXEN SODIUM) [Concomitant]

REACTIONS (6)
  - Disease progression [None]
  - Decreased appetite [None]
  - Hepatic enzyme increased [None]
  - Back pain [None]
  - Asthenia [None]
  - Fatigue [None]

NARRATIVE: CASE EVENT DATE: 20140904
